FAERS Safety Report 9059860 (Version 1)
Quarter: 2013Q2

REPORT INFORMATION
  Report Type: Spontaneous
  Country: US (occurrence: None)
  Receive Date: 20130206
  Receipt Date: 20130206
  Transmission Date: 20140414
  Serious: Yes (Hospitalization)
  Sender: FDA-Public Use
  Company Number: None

PATIENT
  Age: 4 Year
  Sex: Male
  Weight: 18.6 kg

DRUGS (1)
  1. BUSPIRONE [Suspect]
     Indication: AUTISM

REACTIONS (2)
  - Dehydration [None]
  - Influenza [None]
